FAERS Safety Report 25823931 (Version 1)
Quarter: 2025Q3

REPORT INFORMATION
  Report Type: Spontaneous
  Country: US (occurrence: US)
  Receive Date: 20250919
  Receipt Date: 20250919
  Transmission Date: 20251020
  Serious: No
  Sender: BOEHRINGER INGELHEIM
  Company Number: US-Komodo Health-a23aa00000ACe7BAAT

PATIENT
  Sex: Male

DRUGS (3)
  1. OFEV [Suspect]
     Active Substance: NINTEDANIB
     Indication: Idiopathic pulmonary fibrosis
     Dates: start: 202207, end: 2025
  2. OFEV [Suspect]
     Active Substance: NINTEDANIB
     Dates: start: 2025
  3. OFEV [Suspect]
     Active Substance: NINTEDANIB

REACTIONS (5)
  - Diarrhoea [Not Recovered/Not Resolved]
  - Product residue present [Unknown]
  - Dyspnoea [Unknown]
  - Oxygen saturation decreased [Unknown]
  - Asthenia [Not Recovered/Not Resolved]

NARRATIVE: CASE EVENT DATE: 20220101
